FAERS Safety Report 5371969-6 (Version None)
Quarter: 2007Q2

REPORT INFORMATION
  Report Type: 
  Country: None (occurrence: None)
  Receive Date: 20070627
  Receipt Date: 20070622
  Transmission Date: 20071010
  Serious: Yes (Death)
  Sender: FDA-Public Use
  Company Number: JP-ASTRAZENECA-2007AP03751

PATIENT
  Age: 68 Year
  Sex: Male

DRUGS (2)
  1. OMEPRAL [Suspect]
     Route: 048
  2. CERCINE [Suspect]
     Route: 041
     Dates: start: 20070504

REACTIONS (1)
  - ACUTE RESPIRATORY FAILURE [None]
